FAERS Safety Report 9265835 (Version 1)
Quarter: 2013Q2

REPORT INFORMATION
  Report Type: Spontaneous
  Country: JP (occurrence: JP)
  Receive Date: 20130501
  Receipt Date: 20130501
  Transmission Date: 20140414
  Serious: Yes (Hospitalization)
  Sender: FDA-Public Use
  Company Number: JP-GLAXOSMITHKLINE-B0887714A

PATIENT
  Age: 78 Year
  Sex: Female
  Weight: 52 kg

DRUGS (8)
  1. VALTREX [Suspect]
     Indication: PRODUCT USED FOR UNKNOWN INDICATION
     Dosage: 1000MG TWICE PER DAY
     Route: 048
  2. VALTREX [Suspect]
     Indication: PRODUCT USED FOR UNKNOWN INDICATION
     Dosage: 1000MG THREE TIMES PER DAY
     Route: 048
  3. VALTREX [Suspect]
     Indication: PRODUCT USED FOR UNKNOWN INDICATION
     Dosage: 1000MG PER DAY
     Route: 048
  4. LYRICA [Suspect]
     Indication: PRODUCT USED FOR UNKNOWN INDICATION
     Dosage: 75MG TWICE PER DAY
     Route: 048
  5. LYRICA [Suspect]
     Indication: PRODUCT USED FOR UNKNOWN INDICATION
     Dosage: 75MG PER DAY
     Route: 048
  6. ADALAT-CR [Concomitant]
     Dosage: 20MG PER DAY
     Route: 048
  7. VOLTAREN [Concomitant]
     Dosage: 25MG THREE TIMES PER DAY
     Route: 048
  8. VITANEURIN [Concomitant]
     Dosage: 50MG TWICE PER DAY
     Route: 048

REACTIONS (9)
  - Toxic encephalopathy [Unknown]
  - Altered state of consciousness [Recovered/Resolved]
  - Dysarthria [Unknown]
  - Snoring [Unknown]
  - Somnolence [Unknown]
  - Nystagmus [Unknown]
  - Tongue dry [Unknown]
  - Renal disorder [Recovered/Resolved]
  - Overdose [Unknown]
